FAERS Safety Report 10904836 (Version 1)
Quarter: 2015Q1

REPORT INFORMATION
  Report Type: Spontaneous
  Country: FR (occurrence: None)
  Receive Date: 20150306
  Receipt Date: 20150306
  Transmission Date: 20150721
  Serious: Yes (Life-Threatening)
  Sender: FDA-Public Use
  Company Number: 125829W

PATIENT
  Age: 31 Year
  Sex: Male

DRUGS (3)
  1. CERUBIDINE [Suspect]
     Active Substance: DAUNORUBICIN HYDROCHLORIDE
     Indication: ACUTE MYELOID LEUKAEMIA
     Dosage: 120 MG (120 MG, 1 IN 1 D), INTRAVENOUS (NOT OTHERWISE SPECIFIED)
     Route: 042
     Dates: start: 20081117, end: 20081119
  2. ARACYTINE (CYTARABINE) (UNKNOWN) (CYTARABINE)? [Suspect]
     Active Substance: CYTARABINE
     Indication: ACUTE MYELOID LEUKAEMIA
     Route: 037
     Dates: start: 20081117, end: 20081123
  3. MYLOTARG [Suspect]
     Active Substance: GEMTUZUMAB OZOGAMICIN
     Indication: ACUTE MYELOID LEUKAEMIA
     Dosage: 12 MG (12 MG, 1 IN 1 D), INTRAVENOUS (NOT OTHERWISE SPECIFIED)
     Route: 042
     Dates: start: 20081120, end: 20081120

REACTIONS (4)
  - Escherichia sepsis [None]
  - Transplant failure [None]
  - Staphylococcus test positive [None]
  - Transplant [None]

NARRATIVE: CASE EVENT DATE: 20081126
